FAERS Safety Report 6991414-4 (Version None)
Quarter: 2010Q3

REPORT INFORMATION
  Report Type: 
  Country: None (occurrence: None)
  Receive Date: 20100916
  Receipt Date: 20090804
  Transmission Date: 20110219
  Serious: No
  Sender: FDA-Public Use
  Company Number: US-WYE-H10481509

PATIENT
  Age: 46 Year
  Sex: Female
  Weight: 63.56 kg

DRUGS (2)
  1. ADVIL PM [Suspect]
     Indication: ANALGESIC THERAPY
     Dosage: 2 CAPLETS X 1
     Route: 048
     Dates: start: 20090802, end: 20090802
  2. ADVIL PM [Suspect]
     Indication: INSOMNIA

REACTIONS (4)
  - LETHARGY [None]
  - POLLAKIURIA [None]
  - SOMNOLENCE [None]
  - SWOLLEN TONGUE [None]
